FAERS Safety Report 4888030-7 (Version None)
Quarter: 2006Q1

REPORT INFORMATION
  Report Type: 
  Country: None (occurrence: None)
  Receive Date: 20060123
  Receipt Date: 20051005
  Transmission Date: 20060701
  Serious: Yes (Hospitalization)
  Sender: FDA-Public Use
  Company Number: US-MERCK-0510USA04314

PATIENT
  Age: 50 Year
  Sex: Female
  Weight: 63 kg

DRUGS (3)
  1. VIOXX [Suspect]
     Indication: ARTHRALGIA
     Route: 048
  2. LOTENSIN [Concomitant]
     Route: 065
  3. ALEVE [Concomitant]
     Route: 065

REACTIONS (3)
  - HEART RATE IRREGULAR [None]
  - MYOCARDIAL INFARCTION [None]
  - PANCREATITIS [None]
